FAERS Safety Report 13725070 (Version 1)
Quarter: 2017Q3

REPORT INFORMATION
  Report Type: Spontaneous
  Country: US (occurrence: US)
  Receive Date: 20170706
  Receipt Date: 20170706
  Transmission Date: 20171127
  Serious: Yes (Hospitalization)
  Sender: FDA-Public Use
  Company Number: US-PFIZER INC-2017287769

PATIENT
  Age: 6 Decade
  Sex: Male
  Weight: 66 kg

DRUGS (3)
  1. NEORAL [Concomitant]
     Active Substance: CYCLOSPORINE
     Indication: PROPHYLAXIS AGAINST TRANSPLANT REJECTION
     Dosage: 600 MG, 2X/DAY
     Route: 048
  2. NEORAL [Concomitant]
     Active Substance: CYCLOSPORINE
     Dosage: 300 MG, DAILY, ^TAKES 2 DURING THE DAY AND ONE AT NIGHT^
     Route: 048
  3. RAPAMUNE [Suspect]
     Active Substance: SIROLIMUS
     Indication: PROPHYLAXIS AGAINST TRANSPLANT REJECTION
     Dosage: 2 MG, 1X/DAY

REACTIONS (3)
  - Lymphoma [Recovered/Resolved with Sequelae]
  - Malaise [Unknown]
  - Viral infection [Unknown]
